FAERS Safety Report 9193378 (Version 2)
Quarter: 2013Q2

REPORT INFORMATION
  Report Type: Spontaneous
  Country: US (occurrence: None)
  Receive Date: 20120703
  Receipt Date: 20130107
  Transmission Date: 20140414
  Serious: Yes (Other)
  Sender: FDA-Public Use
  Company Number: PHEH2012US005690

PATIENT
  Age: 46 Year
  Sex: Female
  Weight: 79.4 kg

DRUGS (4)
  1. GILENYA (FTY)CAPSULE [Suspect]
     Indication: MULTIPLE SCLEROSIS
     Route: 048
     Dates: start: 20110719, end: 20120224
  2. BACLATIN [Concomitant]
  3. LEVOXYL (LEVOTHYROXINE SODIUM) [Concomitant]
  4. MACROBID (NITROFURANTOIN) [Concomitant]

REACTIONS (4)
  - Hypoaesthesia [None]
  - Multiple sclerosis relapse [None]
  - Chromaturia [None]
  - Hemiplegia [None]
